FAERS Safety Report 23726005 (Version 1)
Quarter: 2024Q2

REPORT INFORMATION
  Report Type: Report from Study
  Country: CA (occurrence: CA)
  Receive Date: 20240410
  Receipt Date: 20240410
  Transmission Date: 20240715
  Serious: Yes (Other)
  Sender: FDA-Public Use
  Company Number: CA-CELLTRION INC.-2024CA006580

PATIENT

DRUGS (2)
  1. YUFLYMA [Suspect]
     Active Substance: ADALIMUMAB-AATY
     Indication: Crohn^s disease
     Dosage: 40 MILLIGRAM, Q2WEEKS, MOST RECENT INJECTION DATE: STARTED 19SEP2023 THEN Q2WEEKS
     Route: 058
     Dates: start: 20230919
  2. FLUTICASONE FUROATE [Concomitant]
     Active Substance: FLUTICASONE FUROATE

REACTIONS (1)
  - Prostate cancer [Unknown]
